FAERS Safety Report 4852124-2 (Version None)
Quarter: 2005Q4

REPORT INFORMATION
  Report Type: 
  Country: None (occurrence: None)
  Receive Date: 20051123
  Receipt Date: 20050927
  Transmission Date: 20060501
  Serious: No
  Sender: FDA-Public Use
  Company Number: 217565

PATIENT
  Age: 58 Year
  Sex: Female
  Weight: 46.7 kg

DRUGS (6)
  1. RAPTIVA [Suspect]
     Indication: PSORIASIS
     Dosage: 0.5 ML, 1/WEEK, SUBCUTANEOUS
     Route: 058
     Dates: start: 20050722
  2. DOXYCYCLINE [Concomitant]
  3. ZOLOFT [Concomitant]
  4. CLOBEX (CLOBETASOL PROPIONATE) [Concomitant]
  5. DOVONEX [Concomitant]
  6. PROTOPIC OINTMENT (TACROLIMUS) [Concomitant]

REACTIONS (4)
  - ALOPECIA [None]
  - PSORIASIS [None]
  - RASH [None]
  - SKIN EXFOLIATION [None]
